FAERS Safety Report 8115167-1 (Version None)
Quarter: 2012Q1

REPORT INFORMATION
  Report Type: 
  Country: None (occurrence: None)
  Receive Date: 20120206
  Receipt Date: 20120201
  Transmission Date: 20120608
  Serious: Yes (Life-Threatening)
  Sender: FDA-Public Use
  Company Number: FR-PFIZER INC-2011310954

PATIENT
  Age: 48 Year
  Sex: Female
  Weight: 81 kg

DRUGS (4)
  1. NEURONTIN [Suspect]
     Dosage: 500 MG, 3X/DAY
     Dates: start: 20110601, end: 20111201
  2. NEURONTIN [Suspect]
     Indication: NEUROPATHY PERIPHERAL
     Dosage: 400 MG, 3X/DAY
     Route: 048
     Dates: start: 20110201, end: 20110401
  3. OXYCONTIN [Concomitant]
     Dosage: UNK
     Dates: start: 20110201, end: 20110401
  4. OXYCONTIN [Concomitant]
     Dosage: UNK
     Dates: start: 20110601, end: 20111201

REACTIONS (2)
  - NEUTROPENIA [None]
  - APLASIA [None]
